FAERS Safety Report 6998927-X (Version None)
Quarter: 2010Q3

REPORT INFORMATION
  Report Type: 
  Country: None (occurrence: None)
  Receive Date: 20100920
  Receipt Date: 20070615
  Transmission Date: 20110219
  Serious: Yes (Other)
  Sender: FDA-Public Use
  Company Number: US-ASTRAZENECA-2006UW24345

PATIENT
  Sex: Male
  Weight: 90.7 kg

DRUGS (18)
  1. SEROQUEL [Suspect]
     Indication: BIPOLAR DISORDER
     Route: 048
     Dates: start: 20040129
  2. SEROQUEL [Suspect]
     Indication: PARANOIA
     Route: 048
     Dates: start: 20040129
  3. SEROQUEL [Suspect]
     Route: 048
  4. SEROQUEL [Suspect]
     Route: 048
  5. ZYPREXA [Suspect]
     Dosage: 5-20 MG
     Dates: start: 20010503
  6. ABILIFY [Suspect]
     Dates: start: 20060921
  7. INDERAL [Concomitant]
     Dosage: 20-40 MG
     Dates: start: 20040129
  8. WELLBUTRIN [Concomitant]
     Dosage: 50-300 MG
     Dates: start: 20010520, end: 20010704
  9. WELLBUTRIN [Concomitant]
     Dates: start: 20040129
  10. KLONOPIN [Concomitant]
     Dosage: 0.5-8 MG
     Dates: start: 20010503
  11. DEPAKOTE [Concomitant]
     Dosage: 750-1000 MG
     Dates: start: 20010704
  12. DOXEPIN HCL [Concomitant]
     Dates: start: 20010704
  13. PRILOSEC [Concomitant]
     Dosage: 20-40 MG
     Dates: start: 20010520
  14. ASPIRIN [Concomitant]
     Dates: start: 20010520
  15. TOPAMAX [Concomitant]
     Indication: PARANOIA
     Dates: start: 20040129
  16. ARICEPT [Concomitant]
     Indication: ALCOHOL INDUCED PERSISTING DEMENTIA
     Dates: start: 20040129
  17. LITHIUM CARBONATE [Concomitant]
     Dates: start: 20010520
  18. RESTORIL [Concomitant]
     Dates: start: 20010704

REACTIONS (4)
  - ALCOHOLIC PANCREATITIS [None]
  - DIABETES MELLITUS [None]
  - GLUCOSE TOLERANCE IMPAIRED [None]
  - PANCREATITIS [None]
